FAERS Safety Report 15395050 (Version 3)
Quarter: 2019Q2

REPORT INFORMATION
  Report Type: Report from Study
  Country: US (occurrence: US)
  Receive Date: 20180918
  Receipt Date: 20190501
  Transmission Date: 20190711
  Serious: No
  Sender: FDA-Public Use
  Company Number: PHHY2018US100415

PATIENT
  Sex: Female

DRUGS (1)
  1. ILARIS [Suspect]
     Active Substance: CANAKINUMAB
     Indication: CRYOPYRIN ASSOCIATED PERIODIC SYNDROME
     Dosage: 150 MG, Q4W
     Route: 058

REACTIONS (7)
  - Dyspnoea [Unknown]
  - Urinary tract infection [Unknown]
  - Productive cough [Unknown]
  - Vomiting [Unknown]
  - Nausea [Unknown]
  - Headache [Unknown]
  - Cough [Unknown]
